FAERS Safety Report 5161870-5 (Version None)
Quarter: 2006Q4

REPORT INFORMATION
  Report Type: 
  Country: None (occurrence: None)
  Receive Date: 20061130
  Receipt Date: 20061012
  Transmission Date: 20070319
  Serious: No
  Sender: FDA-Public Use
  Company Number: US-GLAXOSMITHKLINE-A0623379A

PATIENT
  Sex: Female

DRUGS (4)
  1. WELLBUTRIN XL [Suspect]
     Indication: DEPRESSION
     Dosage: 150MG ALTERNATE DAYS
     Route: 048
  2. MAGNEVIST [Suspect]
     Route: 042
     Dates: start: 20060901
  3. FEMARA [Concomitant]
  4. LEXAPRO [Concomitant]

REACTIONS (1)
  - DEPRESSION [None]
